FAERS Safety Report 18137492 (Version 1)
Quarter: 2020Q3

REPORT INFORMATION
  Report Type: Spontaneous
  Country: US (occurrence: US)
  Receive Date: 20200811
  Receipt Date: 20200811
  Transmission Date: 20201103
  Serious: No
  Sender: FDA-Public Use
  Company Number: US-BIOMARINAP-US-2020-131242

PATIENT
  Age: 43 Year
  Sex: Female

DRUGS (6)
  1. HYDROCHLOROTH [Concomitant]
     Active Substance: HYDROCHLOROTHIAZIDE
     Indication: PRODUCT USED FOR UNKNOWN INDICATION
  2. OMEPRAZOLE. [Concomitant]
     Active Substance: OMEPRAZOLE
     Indication: PRODUCT USED FOR UNKNOWN INDICATION
  3. FLOVENT [Concomitant]
     Active Substance: FLUTICASONE PROPIONATE
     Indication: PRODUCT USED FOR UNKNOWN INDICATION
  4. FLUTICASONE. [Concomitant]
     Active Substance: FLUTICASONE
     Indication: PRODUCT USED FOR UNKNOWN INDICATION
  5. KUVAN [Suspect]
     Active Substance: SAPROPTERIN DIHYDROCHLORIDE
     Indication: PHENYLKETONURIA
     Dosage: 24000 MILLIGRAM, QD
     Route: 048
     Dates: start: 20200411
  6. RISPERIDONE. [Concomitant]
     Active Substance: RISPERIDONE
     Indication: PRODUCT USED FOR UNKNOWN INDICATION

REACTIONS (1)
  - Headache [Recovered/Resolved]

NARRATIVE: CASE EVENT DATE: 202007
